FAERS Safety Report 11839605 (Version 2)
Quarter: 2018Q1

REPORT INFORMATION
  Report Type: Report from Study
  Country: GB (occurrence: GB)
  Receive Date: 20151216
  Receipt Date: 20180330
  Transmission Date: 20180508
  Serious: Yes (Death)
  Sender: FDA-Public Use
  Company Number: GB-ROCHE-1677900

PATIENT
  Age: 85 Year
  Sex: Male
  Weight: 59 kg

DRUGS (2)
  1. METHOTREXATE. [Concomitant]
     Active Substance: METHOTREXATE
  2. RITUXIMAB. [Suspect]
     Active Substance: RITUXIMAB
     Indication: RHEUMATOID ARTHRITIS
     Route: 042
     Dates: start: 20090421

REACTIONS (1)
  - Dementia [Fatal]

NARRATIVE: CASE EVENT DATE: 20141229
